FAERS Safety Report 4916530-X (Version None)
Quarter: 2006Q1

REPORT INFORMATION
  Report Type: 
  Country: None (occurrence: None)
  Receive Date: 20060220
  Receipt Date: 20060209
  Transmission Date: 20060701
  Serious: Yes (Hospitalization)
  Sender: FDA-Public Use
  Company Number: IT-SOLVAY-00306000565

PATIENT
  Age: 29 Year
  Sex: Male

DRUGS (1)
  1. MESALAMINE [Suspect]
     Indication: CROHN'S DISEASE
     Dosage: DAILY DOSE: 3 GRAM(S)
     Route: 048
     Dates: start: 20021016

REACTIONS (5)
  - ABDOMINAL PAIN [None]
  - CRYPTOGENIC ORGANIZING PNEUMONIA [None]
  - EOSINOPHIL PERCENTAGE INCREASED [None]
  - HAEMATOCHEZIA [None]
  - RED BLOOD CELL SEDIMENTATION RATE INCREASED [None]
